FAERS Safety Report 7931027 (Version 2)
Quarter: 2014Q2

REPORT INFORMATION
  Report Type: Spontaneous
  Country: None (occurrence: None)
  Receive Date: 20110412
  Receipt Date: 20140415
  Transmission Date: 20141212
  Serious: Yes (Hospitalization, Other)
  Sender: FDA-Public Use
  Company Number: AUR-APL-2011-01187

PATIENT
  Age: 75 Year
  Sex: Male

DRUGS (1)
  1. LAMOTRIGINE (LAMOTRIGINE) [Suspect]
     Indication: CONVULSION
     Dosage: 25MG, 1 D

REACTIONS (20)
  - Generalised tonic-clonic seizure [None]
  - Convulsion [None]
  - Abdominal pain [None]
  - Pyrexia [None]
  - Rash [None]
  - Leukocytosis [None]
  - Eosinophilia [None]
  - Pancreatitis acute [None]
  - Multi-organ failure [None]
  - Hepatomegaly [None]
  - Crepitations [None]
  - Hepatitis [None]
  - Hepatitis cholestatic [None]
  - Hepatic failure [None]
  - Drug reaction with eosinophilia and systemic symptoms [None]
  - Roseolovirus test positive [None]
  - Pneumonia staphylococcal [None]
  - Nosocomial infection [None]
  - Septic shock [None]
  - Drug reaction with eosinophilia and systemic symptoms [None]
